FAERS Safety Report 7606824-1 (Version None)
Quarter: 2011Q3

REPORT INFORMATION
  Report Type: 
  Country: None (occurrence: None)
  Receive Date: 20110713
  Receipt Date: 20110125
  Transmission Date: 20111222
  Serious: Yes (Hospitalization)
  Sender: FDA-Public Use
  Company Number: US-GLAXOSMITHKLINE-A0910468A

PATIENT
  Age: 64 Year
  Sex: Male

DRUGS (1)
  1. ROSIGLITAZONE MALEATE [Suspect]
     Indication: DIABETES MELLITUS
     Route: 048

REACTIONS (5)
  - CHEST PAIN [None]
  - CARDIAC DISORDER [None]
  - DYSPNOEA [None]
  - CARDIAC OPERATION [None]
  - CORONARY ARTERY BYPASS [None]
